FAERS Safety Report 10568888 (Version 1)
Quarter: 2014Q4

REPORT INFORMATION
  Report Type: Spontaneous
  Country: IT (occurrence: IT)
  Receive Date: 20141106
  Receipt Date: 20141106
  Transmission Date: 20150529
  Serious: Yes (Hospitalization)
  Sender: FDA-Public Use
  Company Number: IT-TEVA-519047ISR

PATIENT
  Age: 65 Year
  Sex: Female

DRUGS (4)
  1. IRINOTECAN ACTAVIS [Interacting]
     Active Substance: IRINOTECAN
     Indication: PANCREATIC CARCINOMA METASTATIC
     Dosage: 334.8 MILLIGRAM DAILY;
     Route: 042
     Dates: start: 20140908, end: 20140908
  2. OXALIPLATINO ACCORD [Interacting]
     Active Substance: OXALIPLATIN
     Indication: PANCREATIC CARCINOMA METASTATIC
     Dosage: 158.1 MILLIGRAM DAILY;
     Route: 042
     Dates: start: 20140908, end: 20140908
  3. FLUOROURACILE TEVA [Interacting]
     Active Substance: FLUOROURACIL
     Dosage: 4464 MILLIGRAM DAILY;
     Route: 041
     Dates: start: 20140908, end: 20140908
  4. FLUOROURACILE TEVA [Suspect]
     Active Substance: FLUOROURACIL
     Indication: PANCREATIC CARCINOMA METASTATIC
     Dosage: 744 MILLIGRAM DAILY;
     Route: 040
     Dates: start: 20140908, end: 20140908

REACTIONS (6)
  - Glossitis [Not Recovered/Not Resolved]
  - Pancytopenia [Not Recovered/Not Resolved]
  - Asthenia [Not Recovered/Not Resolved]
  - Mucosal inflammation [Not Recovered/Not Resolved]
  - Pyrexia [Not Recovered/Not Resolved]
  - Drug interaction [Not Recovered/Not Resolved]

NARRATIVE: CASE EVENT DATE: 20140913
